FAERS Safety Report 11206565 (Version 1)
Quarter: 2015Q2

REPORT INFORMATION
  Report Type: Spontaneous
  Country: US (occurrence: US)
  Receive Date: 20150622
  Receipt Date: 20150622
  Transmission Date: 20150821
  Serious: Yes (Hospitalization, Other)
  Sender: FDA-Public Use
  Company Number: US-009507513-1103USA01114

PATIENT
  Sex: Female

DRUGS (4)
  1. ALENDRONATE SODIUM. [Suspect]
     Active Substance: ALENDRONATE SODIUM
     Indication: BONE DENSITY DECREASED
     Dosage: 70 MG, UNK
     Route: 048
     Dates: start: 2008, end: 2010
  2. FOSAMAX [Suspect]
     Active Substance: ALENDRONATE SODIUM
     Indication: BONE DENSITY DECREASED
     Dosage: 10 MG, UNK
     Route: 048
     Dates: start: 1998
  3. SYNTHROID [Concomitant]
     Active Substance: LEVOTHYROXINE SODIUM
  4. FOSAMAX [Suspect]
     Active Substance: ALENDRONATE SODIUM
     Dosage: 70 MG, UNK
     Route: 048
     Dates: end: 2008

REACTIONS (11)
  - Intramedullary rod insertion [Recovering/Resolving]
  - Pain in extremity [Not Recovered/Not Resolved]
  - Femur fracture [Unknown]
  - Headache [Unknown]
  - Pain in jaw [Not Recovered/Not Resolved]
  - Impaired healing [Unknown]
  - Toe operation [Unknown]
  - Musculoskeletal pain [Unknown]
  - Eye pain [Not Recovered/Not Resolved]
  - Back disorder [Unknown]
  - Myalgia [Not Recovered/Not Resolved]

NARRATIVE: CASE EVENT DATE: 2006
